FAERS Safety Report 22333720 (Version 6)
Quarter: 2024Q1

REPORT INFORMATION
  Report Type: Spontaneous
  Country: US (occurrence: US)
  Receive Date: 20230517
  Receipt Date: 20240202
  Transmission Date: 20240410
  Serious: No
  Sender: FDA-Public Use
  Company Number: US-KARYOPHARM-2023KPT001196

PATIENT

DRUGS (19)
  1. XPOVIO [Suspect]
     Active Substance: SELINEXOR
     Indication: Plasma cell myeloma
     Dosage: 80 MG, WEEKLY ON DAYS 1, 8, AND 15 OF EACH 28-DAY CYCLE
     Route: 048
     Dates: start: 202302
  2. XPOVIO [Suspect]
     Active Substance: SELINEXOR
     Dosage: 80 MG, WEEKLY ON DAYS 1, 8, AND 15 OF EACH 28-DAY CYCLE
     Route: 048
     Dates: end: 202305
  3. XPOVIO [Suspect]
     Active Substance: SELINEXOR
     Dosage: 80 MG, WEEKLY ON DAYS 1, 8 AND 15
     Route: 048
     Dates: start: 202305, end: 20230601
  4. XPOVIO [Suspect]
     Active Substance: SELINEXOR
     Dosage: 60 MG, WEEKLY ON DAYS 1, 8, 15, AND 28
     Route: 048
     Dates: start: 2023
  5. XPOVIO [Suspect]
     Active Substance: SELINEXOR
     Dosage: 40 MG, WEEKLY
     Route: 048
  6. ACYCLOVIR [Concomitant]
     Active Substance: ACYCLOVIR
  7. DARZALEX [Concomitant]
     Active Substance: DARATUMUMAB
  8. DEXAMETHASONE [Concomitant]
     Active Substance: DEXAMETHASONE
  9. ELIQUIS [Concomitant]
     Active Substance: APIXABAN
  10. FLUOROMETHOLONE [Concomitant]
     Active Substance: FLUOROMETHOLONE
  11. KYPROLIS [Concomitant]
     Active Substance: CARFILZOMIB
  12. METOPROLOL [Concomitant]
     Active Substance: METOPROLOL
  13. TORSEMIDE [Concomitant]
     Active Substance: TORSEMIDE
  14. LEVOTHYROXINE [Concomitant]
     Active Substance: LEVOTHYROXINE\LEVOTHYROXINE SODIUM
  15. LOMOTIL [Concomitant]
     Active Substance: ATROPINE SULFATE\DIPHENOXYLATE HYDROCHLORIDE
  16. POTASSIUM CHLORIDE [Concomitant]
     Active Substance: POTASSIUM CHLORIDE
  17. ZOFRAN [Concomitant]
     Active Substance: ONDANSETRON HYDROCHLORIDE
  18. AMOXICILLIN [Concomitant]
     Active Substance: AMOXICILLIN
  19. CICLOPIROX OLAMINE [Concomitant]
     Active Substance: CICLOPIROX OLAMINE

REACTIONS (12)
  - Oedema [Unknown]
  - Cellulitis [Unknown]
  - Laboratory test abnormal [Unknown]
  - Diarrhoea [Not Recovered/Not Resolved]
  - Vomiting [Unknown]
  - Asthenia [Unknown]
  - Nausea [Not Recovered/Not Resolved]
  - Platelet count decreased [Unknown]
  - Fatigue [Not Recovered/Not Resolved]
  - Decreased appetite [Not Recovered/Not Resolved]
  - Weight decreased [Unknown]
  - Headache [Unknown]

NARRATIVE: CASE EVENT DATE: 20230101
